FAERS Safety Report 9990521 (Version 2)
Quarter: 2014Q1

REPORT INFORMATION
  Report Type: Spontaneous
  Country: US (occurrence: US)
  Receive Date: 20140310
  Receipt Date: 20140310
  Transmission Date: 20141002
  Serious: No
  Sender: FDA-Public Use
  Company Number: US-PFIZER INC-2014038365

PATIENT
  Age: 43 Year
  Sex: Male

DRUGS (2)
  1. LYRICA [Suspect]
     Indication: FIBROMYALGIA
     Dosage: 150 MG, 2X/DAY
     Route: 048
  2. OMEPRAZOLE [Concomitant]
     Dosage: UNK

REACTIONS (7)
  - Blood creatine phosphokinase increased [Unknown]
  - Carpal tunnel syndrome [Unknown]
  - Hypoaesthesia [Unknown]
  - Paraesthesia [Unknown]
  - Dysstasia [Unknown]
  - Muscular weakness [Unknown]
  - Drug effect incomplete [Unknown]
